FAERS Safety Report 9687539 (Version 4)
Quarter: 2014Q2

REPORT INFORMATION
  Report Type: Spontaneous
  Country: IT (occurrence: IT)
  Receive Date: 20131114
  Receipt Date: 20140415
  Transmission Date: 20141212
  Serious: Yes (Hospitalization)
  Sender: FDA-Public Use
  Company Number: IT-JNJFOC-20131104631

PATIENT
  Age: 36 Year
  Sex: Male
  Weight: 67 kg

DRUGS (3)
  1. STELARA [Suspect]
     Indication: PSORIASIS
     Route: 058
     Dates: start: 20130927, end: 20131025
  2. NICOZID [Concomitant]
     Indication: PROPHYLAXIS
     Route: 048
     Dates: start: 201307
  3. DELTACORTENE [Concomitant]
     Indication: PSORIASIS
     Dates: start: 201303

REACTIONS (1)
  - Disseminated tuberculosis [Not Recovered/Not Resolved]
